FAERS Safety Report 25425083 (Version 2)
Quarter: 2025Q2

REPORT INFORMATION
  Report Type: Report from Study
  Country: ES (occurrence: ES)
  Receive Date: 20250611
  Receipt Date: 20250620
  Transmission Date: 20250716
  Serious: Yes (Hospitalization)
  Sender: MERCK SHARP & DOHME LLC
  Company Number: ES-ASTRAZENECA-202505GLO027136ES

PATIENT
  Age: 43 Year
  Sex: Female

DRUGS (8)
  1. PEMBROLIZUMAB [Suspect]
     Active Substance: PEMBROLIZUMAB
     Indication: Triple negative breast cancer
     Dosage: 200 MG, ONCE EVERY 3 WK
     Route: 050
     Dates: start: 20241025, end: 20250314
  2. PACLITAXEL [Suspect]
     Active Substance: PACLITAXEL
     Indication: Triple negative breast cancer
     Dosage: 80 MG/M2, ONCE EVERY 3 WK
     Route: 050
     Dates: start: 20241025, end: 20250110
  3. CYCLOPHOSPHAMIDE [Suspect]
     Active Substance: CYCLOPHOSPHAMIDE
     Indication: Triple negative breast cancer
     Dosage: 600 MG/M2, ONCE EVERY 3 WK
     Route: 050
     Dates: start: 20250117, end: 20250314
  4. DEXAMETHASONE PHOSPHATE [Concomitant]
     Active Substance: DEXAMETHASONE PHOSPHATE
     Indication: Hepatic failure
     Dosage: 12 MG, QD (4 MILLIGRAM, TID)
     Dates: start: 20250529
  5. CLAVULANIC ACID [Concomitant]
     Active Substance: CLAVULANIC ACID
     Indication: Mastitis
     Dosage: 375 MG, QD (125 MILLIGRAM, TID)
     Route: 050
     Dates: start: 20250306
  6. CARBOPLATIN [Suspect]
     Active Substance: CARBOPLATIN
     Indication: Triple negative breast cancer
     Route: 050
     Dates: start: 20241025, end: 20250110
  7. AMOXICILLIN [Concomitant]
     Active Substance: AMOXICILLIN
     Indication: Mastitis
     Dosage: 875 MILLIGRAM, TID
     Route: 050
     Dates: start: 20250306
  8. DOXORUBICIN [Suspect]
     Active Substance: DOXORUBICIN
     Indication: Triple negative breast cancer
     Dosage: 60 MG/M2, ONCE EVERY 3 WK
     Route: 050
     Dates: start: 20250117, end: 20250314

REACTIONS (1)
  - Hepatic failure [Recovering/Resolving]

NARRATIVE: CASE EVENT DATE: 20250529
